FAERS Safety Report 8058276-8 (Version None)
Quarter: 2012Q1

REPORT INFORMATION
  Report Type: 
  Country: None (occurrence: None)
  Receive Date: 20120120
  Receipt Date: 20120117
  Transmission Date: 20120608
  Serious: No
  Sender: FDA-Public Use
  Company Number: US-PFIZER INC-2012013630

PATIENT
  Sex: Male

DRUGS (3)
  1. COREG [Concomitant]
     Dosage: UNK
  2. MINOXIDIL [Suspect]
     Indication: HYPERTENSION
     Dosage: UNK
     Route: 048
     Dates: start: 20111001, end: 20111101
  3. ATACAND [Concomitant]
     Dosage: UNK

REACTIONS (2)
  - EYE DISCHARGE [None]
  - VISION BLURRED [None]
